FAERS Safety Report 5828470-2 (Version None)
Quarter: 2008Q3

REPORT INFORMATION
  Report Type: 
  Country: None (occurrence: None)
  Receive Date: 20080731
  Receipt Date: 20080728
  Transmission Date: 20090109
  Serious: Yes (Other)
  Sender: FDA-Public Use
  Company Number: BR-GILEAD-2008-0016829

PATIENT
  Sex: Female
  Weight: 58 kg

DRUGS (8)
  1. AMBRISENTAN [Suspect]
     Indication: PULMONARY ARTERIAL HYPERTENSION
     Dates: start: 20080714
  2. AMBRISENTAN [Suspect]
     Dates: start: 20051219, end: 20080609
  3. PANTOPRAZOLE SODIUM [Concomitant]
     Dates: start: 20080612
  4. PANTOPRAZOLE SODIUM [Concomitant]
     Dates: start: 20060314, end: 20080610
  5. FUROSEMIDE [Concomitant]
     Dates: start: 20080612
  6. FUROSEMIDE [Concomitant]
     Dates: start: 20070514, end: 20080610
  7. WARFARIN SODIUM [Concomitant]
     Dates: start: 20080612
  8. WARFARIN SODIUM [Concomitant]
     Dates: start: 20070514, end: 20080610

REACTIONS (1)
  - ABORTION INDUCED [None]
